FAERS Safety Report 19466801 (Version 1)
Quarter: 2021Q2

REPORT INFORMATION
  Report Type: Spontaneous
  Country: US (occurrence: US)
  Receive Date: 20210628
  Receipt Date: 20210628
  Transmission Date: 20210717
  Serious: No
  Sender: FDA-Public Use
  Company Number: US-SA-2021SA210193

PATIENT
  Age: 80 Year
  Sex: Male

DRUGS (2)
  1. DUPIXENT [Suspect]
     Active Substance: DUPILUMAB
     Indication: DERMATITIS ATOPIC
     Dosage: 600 MG, 1X
     Route: 058
     Dates: start: 20210512, end: 20210512
  2. DUPIXENT [Suspect]
     Active Substance: DUPILUMAB
     Dosage: 300 MG, QOW
     Dates: start: 20210526

REACTIONS (5)
  - Musculoskeletal stiffness [Unknown]
  - Spondylitis [Unknown]
  - Pain in extremity [Unknown]
  - Arthritis [Unknown]
  - Ligament rupture [Unknown]

NARRATIVE: CASE EVENT DATE: 2021
